FAERS Safety Report 11401922 (Version 1)
Quarter: 2015Q3

REPORT INFORMATION
  Report Type: Spontaneous
  Country: US (occurrence: None)
  Receive Date: 20150819
  Receipt Date: 20150819
  Transmission Date: 20151125
  Serious: No
  Sender: FDA-Public Use
  Company Number: None

PATIENT
  Age: 42 Year
  Sex: Female

DRUGS (10)
  1. TOPAMAX [Concomitant]
     Active Substance: TOPIRAMATE
  2. TRAMADOL. [Concomitant]
     Active Substance: TRAMADOL
  3. FENTANYL. [Concomitant]
     Active Substance: FENTANYL
  4. LUNESTA [Concomitant]
     Active Substance: ESZOPICLONE
  5. GABAPENTIN. [Concomitant]
     Active Substance: GABAPENTIN
  6. FOLIC ACID. [Concomitant]
     Active Substance: FOLIC ACID
  7. TREXIMET [Concomitant]
     Active Substance: NAPROXEN SODIUM\SUMATRIPTAN SUCCINATE
  8. VITAMIN D [Concomitant]
     Active Substance: CHOLECALCIFEROL
  9. ENBREL [Suspect]
     Active Substance: ETANERCEPT
     Indication: RHEUMATOID ARTHRITIS
     Route: 058
     Dates: start: 20150630, end: 20150804
  10. SYNTHROID [Concomitant]
     Active Substance: LEVOTHYROXINE SODIUM

REACTIONS (2)
  - Rash [None]
  - Injection site mass [None]

NARRATIVE: CASE EVENT DATE: 20150804
